FAERS Safety Report 14686619 (Version 1)
Quarter: 2018Q1

REPORT INFORMATION
  Report Type: Spontaneous
  Country: US (occurrence: US)
  Receive Date: 20180326
  Receipt Date: 20180326
  Transmission Date: 20180509
  Serious: No
  Sender: FDA-Public Use
  Company Number: None

PATIENT
  Age: 43 Year
  Sex: Female

DRUGS (1)
  1. CAPECITABINE  500 MG WEST-WARD [Suspect]
     Active Substance: CAPECITABINE
     Indication: BREAST CANCER
     Dosage: BID FOR 14 DAYS ON 7 DAYS OFF
     Route: 048
     Dates: start: 20180201

REACTIONS (3)
  - Dry skin [None]
  - Lacrimation increased [None]
  - Pain of skin [None]

NARRATIVE: CASE EVENT DATE: 20180301
